FAERS Safety Report 5495765-4 (Version None)
Quarter: 2007Q4

REPORT INFORMATION
  Report Type: 
  Country: None (occurrence: None)
  Receive Date: 20071025
  Receipt Date: 20061106
  Transmission Date: 20080405
  Serious: No
  Sender: FDA-Public Use
  Company Number: A0623913A

PATIENT
  Age: 65 Year
  Sex: Female
  Weight: 85 kg

DRUGS (1)
  1. ADVAIR DISKUS 100/50 [Suspect]
     Indication: BRONCHITIS
     Route: 055
     Dates: start: 20060829, end: 20061001

REACTIONS (5)
  - ANXIETY [None]
  - HICCUPS [None]
  - OESOPHAGEAL DISCOMFORT [None]
  - PALPITATIONS [None]
  - SENSATION OF FOREIGN BODY [None]
